FAERS Safety Report 13621463 (Version 1)
Quarter: 2017Q2

REPORT INFORMATION
  Report Type: Spontaneous
  Country: US (occurrence: US)
  Receive Date: 20170607
  Receipt Date: 20170607
  Transmission Date: 20170830
  Serious: No
  Sender: FDA-Public Use
  Company Number: US-PFIZER INC-2017244822

PATIENT
  Age: 70 Year
  Sex: Female
  Weight: 66.76 kg

DRUGS (2)
  1. SOLU-MEDROL [Suspect]
     Active Substance: METHYLPREDNISOLONE SODIUM SUCCINATE
     Dosage: 125 MG, UNK
     Route: 051
     Dates: start: 20170330
  2. RITUXAN [Interacting]
     Active Substance: RITUXIMAB
     Dosage: 1000 MG, UNK
     Route: 042
     Dates: start: 20170316

REACTIONS (4)
  - Drug interaction [Unknown]
  - Discomfort [Unknown]
  - Dyspnoea [Unknown]
  - Chest pain [Unknown]
